FAERS Safety Report 6898726-3 (Version None)
Quarter: 2010Q3

REPORT INFORMATION
  Report Type: 
  Country: None (occurrence: None)
  Receive Date: 20100802
  Receipt Date: 20071113
  Transmission Date: 20110219
  Serious: Yes (Other)
  Sender: FDA-Public Use
  Company Number: US-PFIZER INC-2007096148

PATIENT
  Sex: Female
  Weight: 55 kg

DRUGS (7)
  1. LYRICA [Suspect]
     Indication: FACIAL PAIN
     Dates: start: 20071020, end: 20071112
  2. LYRICA [Suspect]
     Indication: FIBROMYALGIA
  3. METHADONE HCL [Concomitant]
  4. AMBIEN [Concomitant]
  5. LORTAB [Concomitant]
     Indication: BREAKTHROUGH PAIN
     Dosage: 10/500 UPTO 4 A DAY AS NEEDED
  6. SOMA [Concomitant]
  7. XANAX [Concomitant]

REACTIONS (2)
  - BLISTER [None]
  - RASH [None]
